FAERS Safety Report 9405160 (Version 2)
Quarter: 2013Q3

REPORT INFORMATION
  Report Type: Spontaneous
  Country: DE (occurrence: DE)
  Receive Date: 20130717
  Receipt Date: 20130817
  Transmission Date: 20140515
  Serious: No
  Sender: FDA-Public Use
  Company Number: DE-UCBSA-091528

PATIENT
  Sex: Female

DRUGS (3)
  1. KEPPRA [Suspect]
     Dosage: UNKNOWN DOSE
  2. LAMOTRIGINE [Suspect]
     Dosage: UNKNOWN DOSE
  3. OXCARBAZEPINE [Concomitant]
     Dosage: UNKNOWN DOSE

REACTIONS (1)
  - Leukopenia [Unknown]
